FAERS Safety Report 5383291-2 (Version None)
Quarter: 2007Q3

REPORT INFORMATION
  Report Type: 
  Country: None (occurrence: None)
  Receive Date: 20070705
  Receipt Date: 20070620
  Transmission Date: 20080115
  Serious: Yes (Other)
  Sender: FDA-Public Use
  Company Number: 157826ISR

PATIENT
  Age: 9 Year
  Sex: Female

DRUGS (5)
  1. METHOTREXATE [Suspect]
     Indication: PROPHYLAXIS
  2. ANTITHYMOCYTE IMMUNOGLOBULIN [Suspect]
  3. CYCLOSPORINE [Suspect]
  4. FLUDARABINE PHOSPHATE [Suspect]
  5. CYCLOPHOSPHAMIDE [Suspect]
     Indication: PROPHYLAXIS

REACTIONS (2)
  - GRAFT VERSUS HOST DISEASE [None]
  - MILLER FISHER SYNDROME [None]
